FAERS Safety Report 10437249 (Version 1)
Quarter: 2014Q3

REPORT INFORMATION
  Report Type: Spontaneous
  Country: US (occurrence: US)
  Receive Date: 20140908
  Receipt Date: 20140908
  Transmission Date: 20150326
  Serious: No
  Sender: FDA-Public Use
  Company Number: US-BRISTOL-MYERS SQUIBB COMPANY-19609270

PATIENT
  Age: 4 Year
  Sex: Male

DRUGS (3)
  1. ABILIFY [Suspect]
     Active Substance: ARIPIPRAZOLE
     Indication: DEPRESSION
     Dosage: 1DF= 4MG-MORN, 2MG-EVEN
  2. ABILIFY [Suspect]
     Active Substance: ARIPIPRAZOLE
     Indication: ATTENTION DEFICIT/HYPERACTIVITY DISORDER
     Dosage: 1DF= 4MG-MORN, 2MG-EVEN
  3. QUININE [Concomitant]
     Active Substance: QUININE

REACTIONS (3)
  - Anger [Unknown]
  - Off label use [Unknown]
  - Tremor [Unknown]
